FAERS Safety Report 24351308 (Version 1)
Quarter: 2024Q3

REPORT INFORMATION
  Report Type: Report from Study
  Country: AT (occurrence: AT)
  Receive Date: 20240923
  Receipt Date: 20240923
  Transmission Date: 20241017
  Serious: No
  Sender: ROCHE
  Company Number: AT-ROCHE-2552678

PATIENT
  Age: 52 Year
  Sex: Female
  Weight: 77.0 kg

DRUGS (9)
  1. HERCEPTIN [Suspect]
     Active Substance: TRASTUZUMAB
     Indication: HER2 positive breast cancer
     Dosage: MOST RECENT DOSE PRIOR TO AE 15/JAN/2019? FREQUENCY TEXT:OTHER
     Route: 042
     Dates: start: 20190115
  2. PERJETA [Suspect]
     Active Substance: PERTUZUMAB
     Indication: HER2 positive breast cancer
     Dosage: MOST RECENT DOSE PRIOR TO AE 15/JAN/2019? FREQUENCY TEXT:OTHER
     Route: 042
     Dates: start: 20190115
  3. TAXOTERE [Suspect]
     Active Substance: DOCETAXEL
     Indication: HER2 positive breast cancer
     Dosage: MOST RECENT DOSE PRIOR TO AE 02/MAY/2019
     Route: 042
     Dates: start: 20190115
  4. DIPHENHYDRAMINE HYDROCHLORIDE [Concomitant]
     Active Substance: DIPHENHYDRAMINE HYDROCHLORIDE
     Dosage: ONGOING = NOT CHECKED
     Dates: start: 20190116, end: 20190502
  5. DEXAMETHASONE [Concomitant]
     Active Substance: DEXAMETHASONE
     Dosage: ONGOING = NOT CHECKED
     Dates: start: 20190116, end: 20190502
  6. RANITIDINE HYDROCHLORIDE [Concomitant]
     Active Substance: RANITIDINE HYDROCHLORIDE
     Dosage: ONGOING = NOT CHECKED
     Dates: start: 20190116, end: 20190502
  7. ZOFRAN [Concomitant]
     Active Substance: ONDANSETRON HYDROCHLORIDE
     Dosage: ONGOING = NOT CHECKED
     Dates: start: 20190116, end: 20190502
  8. NOVALGIN (AUSTRIA) [Concomitant]
     Dosage: ONGOING = CHECKED
     Dates: start: 20190205
  9. EMEND [Concomitant]
     Active Substance: APREPITANT
     Dosage: ONGOING = NOT CHECKED
     Dates: start: 20190206, end: 20190502

REACTIONS (1)
  - Weight decreased [Recovered/Resolved]

NARRATIVE: CASE EVENT DATE: 20190502
